FAERS Safety Report 8839212 (Version 1)
Quarter: 2012Q4

REPORT INFORMATION
  Report Type: 
  Country: US (occurrence: US)
  Receive Date: 20121015
  Receipt Date: 20121015
  Transmission Date: 20130627
  Serious: Yes (Hospitalization)
  Sender: FDA-Public Use
  Company Number: US-SANOFI-AVENTIS-2012SA072044

PATIENT
  Age: 94 Year
  Sex: Female

DRUGS (3)
  1. LANTUS SOLOSTAR [Suspect]
     Indication: TYPE II DIABETES MELLITUS
     Dosage: 22-27 units once daily
     Route: 058
  2. SOLOSTAR [Suspect]
     Indication: TYPE II DIABETES MELLITUS
  3. HUMALOG [Suspect]
     Indication: TYPE II DIABETES MELLITUS
     Route: 065

REACTIONS (1)
  - Hospitalisation [Unknown]
